FAERS Safety Report 8805815 (Version 1)
Quarter: 2012Q4

REPORT INFORMATION
  Report Type: Spontaneous
  Country: IT (occurrence: None)
  Receive Date: 20120918
  Receipt Date: 20120918
  Transmission Date: 20130627
  Serious: Yes (Life-Threatening)
  Sender: FDA-Public Use
  Company Number: FK201202656

PATIENT
  Age: 78 Year
  Sex: Female

DRUGS (1)
  1. OXALIPLATIN [Suspect]
     Indication: METASTASES TO LUNG
     Dosage: 135 mg, Cylical,  Intravenous (not otherwise specified)
     Route: 042
     Dates: start: 20120821, end: 20120821

REACTIONS (1)
  - Anaphylactic shock [None]
